FAERS Safety Report 22102389 (Version 1)
Quarter: 2023Q1

REPORT INFORMATION
  Report Type: Spontaneous
  Country: CA (occurrence: CA)
  Receive Date: 20230316
  Receipt Date: 20230316
  Transmission Date: 20230418
  Serious: Yes (Death)
  Sender: FDA-Public Use
  Company Number: CA-CELLTRION INC.-2021CA004919

PATIENT

DRUGS (18)
  1. INFLECTRA [Suspect]
     Active Substance: INFLIXIMAB-DYYB
     Indication: Psoriatic arthropathy
     Dosage: 455 MG Q 0, 2, 6 WEEKS THEN EVERY 8 WEEKS
     Route: 041
     Dates: start: 20160609
  2. INFLECTRA [Suspect]
     Active Substance: INFLIXIMAB-DYYB
     Dosage: 455 MG Q 0, 2, 6 WEEKS THEN EVERY 8 WEEKS
     Route: 041
     Dates: start: 20210330
  3. INFLECTRA [Suspect]
     Active Substance: INFLIXIMAB-DYYB
     Dosage: 455 MG Q 0, 2, 6 WEEKS THEN EVERY 8 WEEKS
     Route: 041
     Dates: start: 20210525
  4. INFLECTRA [Suspect]
     Active Substance: INFLIXIMAB-DYYB
     Dosage: 455 MG Q 0, 2, 6 WEEKS THEN EVERY 8 WEEKS
     Route: 041
     Dates: start: 20210826
  5. INFLECTRA [Suspect]
     Active Substance: INFLIXIMAB-DYYB
     Dosage: 455 MG Q 0, 2, 6 WEEKS THEN EVERY 8 WEEKS
     Route: 041
     Dates: start: 20211021
  6. INFLECTRA [Suspect]
     Active Substance: INFLIXIMAB-DYYB
     Dosage: 455 MG Q 0, 2, 6 WEEKS THEN EVERY 8 WEEKS
     Route: 041
     Dates: start: 20211209
  7. INFLECTRA [Suspect]
     Active Substance: INFLIXIMAB-DYYB
     Dosage: 455 MG Q 0, 2, 6 WEEKS THEN EVERY 8 WEEKS
     Route: 041
     Dates: start: 20220210
  8. INFLECTRA [Suspect]
     Active Substance: INFLIXIMAB-DYYB
     Dosage: 455 MG Q 0, 2, 6 WEEKS THEN EVERY 8 WEEKS
     Route: 041
     Dates: start: 20220602
  9. INFLECTRA [Suspect]
     Active Substance: INFLIXIMAB-DYYB
     Dosage: 455 MG Q 0, 2, 6 WEEKS THEN EVERY 8 WEEKS
     Route: 041
     Dates: start: 20220721
  10. INFLECTRA [Suspect]
     Active Substance: INFLIXIMAB-DYYB
     Dosage: 455 MG Q 0, 2, 6 WEEKS THEN EVERY 8 WEEKS
     Route: 041
     Dates: start: 20220915
  11. INFLECTRA [Suspect]
     Active Substance: INFLIXIMAB-DYYB
     Dosage: 455 MG Q 0, 2, 6 WEEKS THEN EVERY 8 WEEKS
     Route: 041
     Dates: start: 20230105
  12. INDAPAMIDE\PERINDOPRIL ERBUMINE [Concomitant]
     Active Substance: INDAPAMIDE\PERINDOPRIL ERBUMINE
     Dosage: UNK
  13. INSULIN LENTE S [Concomitant]
     Dosage: UNK
  14. JANUMET [Concomitant]
     Active Substance: METFORMIN HYDROCHLORIDE\SITAGLIPTIN PHOSPHATE
     Dosage: UNK
  15. METHOTREXATE [Concomitant]
     Active Substance: METHOTREXATE
     Dosage: 1 DF, WEEKLY, DOSAGE INFORMATION NOT AVAILABLE
     Route: 048
  16. PRAVASTATIN [Concomitant]
     Active Substance: PRAVASTATIN
     Dosage: UNK
  17. PREGABALIN [Concomitant]
     Active Substance: PREGABALIN
     Indication: Neuralgia
     Dosage: 75 MG, FREQUENCY INFORMATION NOT AVAILABLE
  18. SANDOZ AMITRIPTYLINE HCL [Concomitant]
     Dosage: UNK

REACTIONS (5)
  - Myocardial infarction [Fatal]
  - Expired product administered [Unknown]
  - Inappropriate schedule of product administration [Unknown]
  - Blood pressure fluctuation [Unknown]
  - Hypotension [Not Recovered/Not Resolved]

NARRATIVE: CASE EVENT DATE: 20210330
